FAERS Safety Report 16906297 (Version 1)
Quarter: 2019Q4

REPORT INFORMATION
  Report Type: Spontaneous
  Country: BE (occurrence: BE)
  Receive Date: 20191011
  Receipt Date: 20191011
  Transmission Date: 20200122
  Serious: Yes (Other)
  Sender: FDA-Public Use
  Company Number: BE-CELLTRION INC.-2019BE025400

PATIENT

DRUGS (9)
  1. CISPLATIN. [Suspect]
     Active Substance: CISPLATIN
     Indication: DIFFUSE LARGE B-CELL LYMPHOMA
     Dosage: 100 MG/M2
     Route: 065
  2. OCTREOTIDE. [Concomitant]
     Active Substance: OCTREOTIDE
  3. BICNU [Suspect]
     Active Substance: CARMUSTINE
     Indication: IMMUNOSUPPRESSION
     Dosage: 300 MG/M2
     Route: 065
  4. DEXAMETHASONE. [Suspect]
     Active Substance: DEXAMETHASONE
     Indication: DIFFUSE LARGE B-CELL LYMPHOMA
     Dosage: 50 MG
     Route: 065
  5. ARA-C [Suspect]
     Active Substance: CYTARABINE
     Indication: IMMUNOSUPPRESSION
     Dosage: 200 MG/M2 PER DAY FOR 4 DAYS
     Route: 065
  6. ETOPOSIDE. [Suspect]
     Active Substance: ETOPOSIDE
     Indication: IMMUNOSUPPRESSION
     Dosage: 200 MG/M2
     Route: 065
  7. ARA-C [Suspect]
     Active Substance: CYTARABINE
     Indication: DIFFUSE LARGE B-CELL LYMPHOMA
     Dosage: 2 X 2000 MG/M2
     Route: 065
  8. MELPHALAN. [Suspect]
     Active Substance: MELPHALAN
     Indication: IMMUNOSUPPRESSION
     Dosage: 140 MG/M2
     Route: 065
  9. RITUXIMAB (UNKNOWN) [Suspect]
     Active Substance: RITUXIMAB
     Indication: DIFFUSE LARGE B-CELL LYMPHOMA
     Dosage: 375 MG/M2
     Route: 065

REACTIONS (5)
  - Febrile neutropenia [Unknown]
  - Gastrointestinal fungal infection [Unknown]
  - Volvulus [Unknown]
  - Systemic mycosis [Unknown]
  - Cytomegalovirus infection [Unknown]
